FAERS Safety Report 4627568-4 (Version None)
Quarter: 2005Q2

REPORT INFORMATION
  Report Type: 
  Country: None (occurrence: None)
  Receive Date: 20050405
  Receipt Date: 20050322
  Transmission Date: 20051028
  Serious: Yes (Other)
  Sender: FDA-Public Use
  Company Number: 24830

PATIENT
  Age: 60 Year
  Sex: Female

DRUGS (1)
  1. ALDARA [Suspect]
     Indication: BASAL CELL CARCINOMA
     Dosage: 2 SACHET, 1 IN 1 DAY (S), TOPICAL
     Route: 061
     Dates: start: 20040301, end: 20040401

REACTIONS (10)
  - ALOPECIA [None]
  - APPLICATION SITE OEDEMA [None]
  - APPLICATION SITE PAIN [None]
  - EYE IRRITATION [None]
  - GLAUCOMA [None]
  - INFLUENZA LIKE ILLNESS [None]
  - INTRAOCULAR PRESSURE INCREASED [None]
  - IRIS DISORDER [None]
  - IRIS EXFOLIATION [None]
  - VISUAL FIELD DEFECT [None]
